FAERS Safety Report 13040735 (Version 2)
Quarter: 2017Q1

REPORT INFORMATION
  Report Type: Spontaneous
  Country: US (occurrence: US)
  Receive Date: 20161219
  Receipt Date: 20170130
  Transmission Date: 20170428
  Serious: Yes (Death, Hospitalization, Other)
  Sender: FDA-Public Use
  Company Number: US-PFIZER INC-2016571224

PATIENT
  Age: 68 Year
  Sex: Male
  Weight: 55 kg

DRUGS (1)
  1. XALKORI [Suspect]
     Active Substance: CRIZOTINIB
     Indication: LUNG CANCER METASTATIC
     Dosage: 250 MG, 2X/DAY, CYCLIC
     Route: 048
     Dates: start: 20161130, end: 201612

REACTIONS (3)
  - Death [Fatal]
  - Pneumonia [Unknown]
  - Thrombosis [Unknown]

NARRATIVE: CASE EVENT DATE: 20161205
